FAERS Safety Report 10183721 (Version 1)
Quarter: 2014Q2

REPORT INFORMATION
  Report Type: Spontaneous
  Country: US (occurrence: US)
  Receive Date: 20140520
  Receipt Date: 20140520
  Transmission Date: 20141212
  Serious: No
  Sender: FDA-Public Use
  Company Number: US-ENDO PHARMACEUTICALS INC.-BUTL20140003

PATIENT
  Sex: Male

DRUGS (2)
  1. BUTALBITAL/ACETAMINOPHEN/CAFFEINE/CODEINE PHOSPHATE CAPSULES [Suspect]
     Indication: CLUSTER HEADACHE
     Dosage: 50/325/40/30 MG
     Route: 048
     Dates: start: 20140210
  2. BUTALBITAL/ACETATMINOPHEN/CEFFEINE/CODEINE [Concomitant]
     Indication: CLUSTER HEADACHE
     Dosage: 50/325/40/30 MG
     Route: 048
     Dates: start: 2013, end: 201402

REACTIONS (1)
  - Drug effect decreased [Not Recovered/Not Resolved]
